FAERS Safety Report 9520509 (Version 1)
Quarter: 2013Q3

REPORT INFORMATION
  Report Type: Spontaneous
  Country: PL (occurrence: PL)
  Receive Date: 20130913
  Receipt Date: 20130913
  Transmission Date: 20140515
  Serious: Yes (Other)
  Sender: FDA-Public Use
  Company Number: PL-MYLANLABS-2013S1019774

PATIENT
  Age: 6 Decade
  Sex: Female

DRUGS (5)
  1. AZATHIOPRINE [Suspect]
     Indication: IMMUNOSUPPRESSANT DRUG THERAPY
     Route: 065
  2. CICLOSPORIN [Suspect]
     Indication: IMMUNOSUPPRESSANT DRUG THERAPY
     Route: 065
  3. PREDNISONE [Suspect]
     Indication: IMMUNOSUPPRESSANT DRUG THERAPY
     Route: 065
  4. INSULIN [Concomitant]
     Indication: TYPE 1 DIABETES MELLITUS
     Dosage: ULTRALENTE
     Route: 065
  5. SEMILENTE [Concomitant]
     Indication: TYPE 1 DIABETES MELLITUS
     Route: 065

REACTIONS (2)
  - Squamous cell carcinoma of skin [Unknown]
  - Bowen^s disease [Unknown]
